FAERS Safety Report 15057371 (Version 2)
Quarter: 2018Q3

REPORT INFORMATION
  Report Type: Report from Study
  Country: US (occurrence: US)
  Receive Date: 20180625
  Receipt Date: 20180809
  Transmission Date: 20181010
  Serious: No
  Sender: FDA-Public Use
  Company Number: PHEH2018US025417

PATIENT
  Sex: Female

DRUGS (1)
  1. ENTRESTO [Suspect]
     Active Substance: SACUBITRIL\VALSARTAN
     Indication: PRODUCT USED FOR UNKNOWN INDICATION
     Dosage: 1 DF, UNK (49/51MG)
     Route: 048

REACTIONS (5)
  - Asthenia [Unknown]
  - Dyspnoea [Unknown]
  - Onychoclasis [Unknown]
  - Nail discolouration [Unknown]
  - Hypotension [Unknown]
